FAERS Safety Report 18929146 (Version 6)
Quarter: 2021Q3

REPORT INFORMATION
  Report Type: Report from Study
  Country: CO (occurrence: CO)
  Receive Date: 20210223
  Receipt Date: 20210920
  Transmission Date: 20211014
  Serious: Yes (Hospitalization, Other)
  Sender: FDA-Public Use
  Company Number: CO-AMGEN-COLSL2020097374

PATIENT
  Age: 65 Year
  Sex: Male

DRUGS (4)
  1. VECTIBIX [Suspect]
     Active Substance: PANITUMUMAB
     Dosage: 500 MILLIGRAM, Q3WK
     Route: 042
     Dates: start: 20210317, end: 2021
  2. NATURAL TEARS [Concomitant]
     Active Substance: POLYVINYL ALCOHOL\POVIDONE
     Dosage: 1 BOTTLE ( 1 DROP EVERY 12 HOURS)
     Route: 065
     Dates: start: 20200619
  3. VECTIBIX [Suspect]
     Active Substance: PANITUMUMAB
     Dosage: 485 MILLIGRAM, Q3WK
     Route: 042
     Dates: start: 2021
  4. VECTIBIX [Suspect]
     Active Substance: PANITUMUMAB
     Indication: COLORECTAL CANCER METASTATIC
     Dosage: 485 MILLIGRAM, Q2WK
     Route: 042
     Dates: start: 20191016

REACTIONS (7)
  - Skin ulcer [Not Recovered/Not Resolved]
  - Skin reaction [Not Recovered/Not Resolved]
  - Subcutaneous haematoma [Not Recovered/Not Resolved]
  - Off label use [Unknown]
  - Onychoclasis [Not Recovered/Not Resolved]
  - Skin burning sensation [Not Recovered/Not Resolved]
  - Aphthous ulcer [Not Recovered/Not Resolved]

NARRATIVE: CASE EVENT DATE: 2020
